FAERS Safety Report 23750881 (Version 2)
Quarter: 2024Q2

REPORT INFORMATION
  Report Type: Spontaneous
  Country: US (occurrence: US)
  Receive Date: 20240417
  Receipt Date: 20240419
  Transmission Date: 20240716
  Serious: Yes (Hospitalization, Other)
  Sender: FDA-Public Use
  Company Number: US-BRISTOL-MYERS SQUIBB COMPANY-2024-056748

PATIENT
  Age: 56 Year
  Sex: Female

DRUGS (21)
  1. CAMZYOS [Suspect]
     Active Substance: MAVACAMTEN
     Indication: Hypertrophic cardiomyopathy
     Route: 048
     Dates: start: 20240118
  2. CYMBALTA [Concomitant]
     Active Substance: DULOXETINE HYDROCHLORIDE
     Dosage: GASTRO-RESISTANT PELLET
     Route: 048
  3. SINGULAIR [Concomitant]
     Active Substance: MONTELUKAST SODIUM
     Route: 048
  4. FOLIC ACID [Concomitant]
     Active Substance: FOLIC ACID
     Route: 048
  5. METHOTREXATE SODIUM [Concomitant]
     Active Substance: METHOTREXATE SODIUM
     Route: 048
  6. TRULICITY [Concomitant]
     Active Substance: DULAGLUTIDE
  7. GABAPENTIN [Concomitant]
     Active Substance: GABAPENTIN
     Route: 048
  8. FUROSEMIDE [Concomitant]
     Active Substance: FUROSEMIDE
     Route: 048
  9. LISINOPRIL [Concomitant]
     Active Substance: LISINOPRIL
     Route: 048
  10. AMIODARONE HYDROCHLORIDE [Concomitant]
     Active Substance: AMIODARONE HYDROCHLORIDE
     Route: 048
  11. ALLEGRA [Concomitant]
     Active Substance: FEXOFENADINE HYDROCHLORIDE
     Route: 048
  12. XARELTO [Concomitant]
     Active Substance: RIVAROXABAN
     Route: 048
  13. MECLIZINE HYDROCHLORIDE [Concomitant]
     Active Substance: MECLIZINE HYDROCHLORIDE
     Route: 048
  14. CALCIUM CARBONATE\VITAMIN D [Concomitant]
     Active Substance: CALCIUM CARBONATE\VITAMIN D
     Route: 048
  15. DIPHENHYDRAMINE HYDROCHLORIDE [Concomitant]
     Active Substance: DIPHENHYDRAMINE HYDROCHLORIDE
     Route: 048
  16. ALBUTEROL [Concomitant]
     Active Substance: ALBUTEROL
  17. TYLENOL [Concomitant]
     Active Substance: ACETAMINOPHEN
  18. ACRIVASTINE [Concomitant]
     Active Substance: ACRIVASTINE
  19. NICODERM CQ [Concomitant]
     Active Substance: NICOTINE
  20. ONDANSETRON [Concomitant]
     Active Substance: ONDANSETRON
  21. GLUCOSAMINE AND CHONDROITIN WITH MSM [Concomitant]

REACTIONS (1)
  - Atrial fibrillation [Unknown]
